FAERS Safety Report 5583867-3 (Version None)
Quarter: 2008Q1

REPORT INFORMATION
  Report Type: 
  Country: None (occurrence: None)
  Receive Date: 20080102
  Receipt Date: 20080102
  Transmission Date: 20080703
  Serious: No
  Sender: FDA-Public Use
  Company Number: None

PATIENT
  Age: 42 Year
  Sex: Male
  Weight: 77.1115 kg

DRUGS (1)
  1. CHANTIX [Suspect]
     Indication: SMOKING CESSATION THERAPY
     Dosage: PER INSTRUCTIONS ON BOX
     Dates: start: 20071218, end: 20071228

REACTIONS (8)
  - DISCOMFORT [None]
  - DRUG ABUSE [None]
  - HEADACHE [None]
  - IRRITABILITY [None]
  - PAIN OF SKIN [None]
  - PERIPHERAL COLDNESS [None]
  - SENSATION OF PRESSURE [None]
  - SKIN BURNING SENSATION [None]
